FAERS Safety Report 5160792-3 (Version None)
Quarter: 2006Q4

REPORT INFORMATION
  Report Type: 
  Country: None (occurrence: None)
  Receive Date: 20060919
  Receipt Date: 20060626
  Transmission Date: 20070319
  Serious: No
  Sender: FDA-Public Use
  Company Number: BDI-008372

PATIENT
  Age: 52 Year
  Sex: Female
  Weight: 102.27 kg

DRUGS (2)
  1. MULTIHANCE [Suspect]
     Indication: ANGIOGRAM
     Dosage: 30 ML ONCE IV
     Route: 042
     Dates: start: 20060626, end: 20060626
  2. MULTIHANCE [Suspect]
     Indication: HYPERTENSION
     Dosage: 30 ML ONCE IV
     Route: 042
     Dates: start: 20060626, end: 20060626

REACTIONS (2)
  - NAUSEA [None]
  - VOMITING [None]
